FAERS Safety Report 4550715-X (Version None)
Quarter: 2004Q4

REPORT INFORMATION
  Report Type: 
  Country: None (occurrence: None)
  Receive Date: 20041217
  Receipt Date: 20040915
  Transmission Date: 20050328
  Serious: No
  Sender: FDA-Public Use
  Company Number: 2004-BP-08292BP

PATIENT
  Sex: Female

DRUGS (13)
  1. SPIRIVA [Suspect]
     Indication: EMPHYSEMA
     Dosage: 18 MCG (18 MCG), IH
     Route: 055
     Dates: start: 20040801
  2. SPIRIVA [Suspect]
     Indication: ASTHMA
  3. FORADIL [Concomitant]
  4. PULMICORT [Concomitant]
  5. LIPITOR [Concomitant]
  6. SYNTHROID [Concomitant]
  7. TOPROL-XL [Concomitant]
  8. PLAVIX [Concomitant]
  9. FOLTX (TRIOBE) [Concomitant]
  10. ACETYLSALICYLIC ACID SRT [Concomitant]
  11. PROTONIX [Concomitant]
  12. DIOVAN [Concomitant]
  13. FOSAMAX [Concomitant]

REACTIONS (1)
  - DRY EYE [None]
